FAERS Safety Report 15258421 (Version 2)
Quarter: 2018Q3

REPORT INFORMATION
  Report Type: Report from Study
  Country: US (occurrence: US)
  Receive Date: 20180809
  Receipt Date: 20180827
  Transmission Date: 20181010
  Serious: Yes (Hospitalization, Other)
  Sender: FDA-Public Use
  Company Number: US-BIOGEN-2018BI00617105

PATIENT
  Age: 43 Year
  Sex: Female

DRUGS (3)
  1. TECFIDERA [Suspect]
     Active Substance: DIMETHYL FUMARATE
     Indication: MULTIPLE SCLEROSIS
     Dosage: STARTING DOSE
     Route: 048
     Dates: start: 20180719, end: 20180725
  2. TECFIDERA [Suspect]
     Active Substance: DIMETHYL FUMARATE
     Dosage: MAINTENANCE DOSE
     Route: 048
  3. TECFIDERA [Suspect]
     Active Substance: DIMETHYL FUMARATE
     Dosage: MAINTENANCE DOSE
     Route: 048
     Dates: start: 20180717

REACTIONS (16)
  - Limb mass [Unknown]
  - Tremor [Unknown]
  - Contusion [Unknown]
  - Abdominal distension [Unknown]
  - Thrombosis [Unknown]
  - Arthralgia [Unknown]
  - Drug dose omission [Unknown]
  - Pain in extremity [Unknown]
  - Urinary tract infection [Unknown]
  - Pain in extremity [Unknown]
  - Hyperhidrosis [Unknown]
  - Back pain [Unknown]
  - Feeling hot [Unknown]
  - Peripheral swelling [Unknown]
  - Abdominal pain upper [Unknown]
  - Sciatica [Unknown]

NARRATIVE: CASE EVENT DATE: 20180723
